FAERS Safety Report 8241235-X (Version None)
Quarter: 2012Q1

REPORT INFORMATION
  Report Type: 
  Country: None (occurrence: None)
  Receive Date: 20120328
  Receipt Date: 20120323
  Transmission Date: 20120608
  Serious: Yes (Other)
  Sender: FDA-Public Use
  Company Number: US-PFIZER INC-2008013246

PATIENT
  Sex: Male
  Weight: 94.331 kg

DRUGS (4)
  1. CHANTIX [Suspect]
     Dosage: 0.5 MG, DAILY
     Route: 048
     Dates: start: 20081101, end: 20081101
  2. CHANTIX [Suspect]
     Indication: SMOKING CESSATION THERAPY
     Dosage: UNK
     Route: 048
     Dates: start: 20080101, end: 20080101
  3. LORTAB [Concomitant]
     Indication: PAIN
     Dosage: UNK, 3X/DAY
  4. CHANTIX [Suspect]
     Dosage: UNK
     Route: 048
     Dates: start: 20081101, end: 20090101

REACTIONS (11)
  - ANXIETY [None]
  - DRUG TOLERANCE DECREASED [None]
  - DISTURBANCE IN ATTENTION [None]
  - FEELING JITTERY [None]
  - DEPRESSION [None]
  - ANGER [None]
  - INSOMNIA [None]
  - MOOD SWINGS [None]
  - FEAR [None]
  - SLEEP DISORDER [None]
  - MIGRAINE [None]
